FAERS Safety Report 6838869-3 (Version None)
Quarter: 2010Q3

REPORT INFORMATION
  Report Type: 
  Country: None (occurrence: None)
  Receive Date: 20100713
  Receipt Date: 20070813
  Transmission Date: 20110219
  Serious: No
  Sender: FDA-Public Use
  Company Number: US-PFIZER INC-2007042837

PATIENT
  Age: 64 Year
  Sex: Female
  Weight: 71.4 kg

DRUGS (5)
  1. CHANTIX [Suspect]
     Indication: SMOKING CESSATION THERAPY
     Dates: start: 20070519
  2. SYNTHROID [Concomitant]
  3. VALSARTAN [Concomitant]
     Indication: HYPERTENSION
  4. VITAMINS [Concomitant]
  5. NICOTINE [Concomitant]
     Indication: SMOKING CESSATION THERAPY

REACTIONS (2)
  - INSOMNIA [None]
  - PALPITATIONS [None]
